FAERS Safety Report 9109694 (Version 3)
Quarter: 2013Q4

REPORT INFORMATION
  Report Type: Spontaneous
  Country: FR (occurrence: FR)
  Receive Date: 20130222
  Receipt Date: 20131226
  Transmission Date: 20140711
  Serious: Yes (Hospitalization, Other)
  Sender: FDA-Public Use
  Company Number: FR-PFIZER INC-2013059638

PATIENT
  Age: 46 Year
  Sex: Female

DRUGS (7)
  1. SALAZOPYRINE [Suspect]
     Dosage: 500 MG, DAILY
     Route: 048
     Dates: start: 20121128, end: 20121204
  2. SALAZOPYRINE [Suspect]
     Dosage: 1000 MG, DAILY
     Route: 048
     Dates: start: 20121205, end: 20121211
  3. SALAZOPYRINE [Suspect]
     Dosage: 1.5 G, DAILY
     Route: 048
     Dates: start: 20121212, end: 20121226
  4. BI-PROFENID [Concomitant]
     Dosage: 100 MG, 1X/DAY
     Route: 048
     Dates: start: 2007, end: 20121227
  5. EUPANTOL [Concomitant]
     Dosage: 20 MG, 1X/DAY
     Route: 048
     Dates: start: 2007
  6. DOLIPRANE [Concomitant]
     Dosage: UNK
     Route: 048
     Dates: start: 20121127, end: 20121226
  7. AREDIA [Concomitant]
     Dosage: 45 MG, 1X/DAY
     Route: 042
     Dates: start: 20121127, end: 20121128

REACTIONS (2)
  - Drug reaction with eosinophilia and systemic symptoms [Recovered/Resolved]
  - Human herpesvirus 6 infection [Unknown]
